FAERS Safety Report 13626220 (Version 1)
Quarter: 2017Q2

REPORT INFORMATION
  Report Type: Spontaneous
  Country: US (occurrence: US)
  Receive Date: 20170531
  Receipt Date: 20170531
  Transmission Date: 20170830
  Serious: Yes (Other)
  Sender: FDA-Public Use
  Company Number: US-ASTELLAS-1304639

PATIENT
  Sex: Female

DRUGS (6)
  1. XARELTO [Concomitant]
     Active Substance: RIVAROXABAN
  2. FUROSEMIDE. [Concomitant]
     Active Substance: FUROSEMIDE
  3. MOTRIN [Concomitant]
     Active Substance: IBUPROFEN
  4. TARCEVA [Suspect]
     Active Substance: ERLOTINIB HYDROCHLORIDE
     Indication: LUNG NEOPLASM MALIGNANT
     Route: 065
     Dates: start: 20130829
  5. MAGNESIUM OXIDE. [Concomitant]
     Active Substance: MAGNESIUM OXIDE
  6. XANAX [Concomitant]
     Active Substance: ALPRAZOLAM

REACTIONS (1)
  - Cerebrovascular accident [Unknown]
